FAERS Safety Report 6165272-4 (Version None)
Quarter: 2009Q2

REPORT INFORMATION
  Report Type: 
  Country: None (occurrence: None)
  Receive Date: 20090423
  Receipt Date: 20090417
  Transmission Date: 20091009
  Serious: Yes (Hospitalization)
  Sender: FDA-Public Use
  Company Number: A0780018A

PATIENT
  Sex: Female

DRUGS (3)
  1. LAMICTAL [Suspect]
     Indication: BIPOLAR DISORDER
     Dosage: 200MG PER DAY
     Route: 048
     Dates: start: 20090316, end: 20090413
  2. UNKNOWN MEDICATION [Concomitant]
  3. LITHIUM CARBONATE [Concomitant]

REACTIONS (7)
  - HYPERSENSITIVITY [None]
  - HYPOTENSION [None]
  - LIP OEDEMA [None]
  - MENTAL DISORDER [None]
  - RASH ERYTHEMATOUS [None]
  - SKIN REACTION [None]
  - SOMNOLENCE [None]
